FAERS Safety Report 6374781-4 (Version None)
Quarter: 2009Q3

REPORT INFORMATION
  Report Type: 
  Country: None (occurrence: None)
  Receive Date: 20090924
  Receipt Date: 20090918
  Transmission Date: 20100115
  Serious: Yes (Hospitalization)
  Sender: FDA-Public Use
  Company Number: PHHO2009CZ10654

PATIENT
  Sex: Male
  Weight: 139 kg

DRUGS (3)
  1. BLINDED ACZ885 ACZ+ [Suspect]
     Indication: GOUT
     Dosage: UNK
     Dates: start: 20090619, end: 20090814
  2. BLINDED COLCHICINE COMP-COL+ [Suspect]
     Indication: GOUT
     Dosage: UNK
     Dates: start: 20090619, end: 20090814
  3. BLINDED NO TREATMENT RECEIVED NOMED [Suspect]
     Indication: GOUT
     Dosage: UNK
     Dates: start: 20090619, end: 20090814

REACTIONS (4)
  - DERMATITIS BULLOUS [None]
  - ERYSIPELAS [None]
  - ERYTHEMA [None]
  - PYREXIA [None]
